FAERS Safety Report 25084558 (Version 1)
Quarter: 2025Q1

REPORT INFORMATION
  Report Type: Spontaneous
  Country: PL (occurrence: PL)
  Receive Date: 20250317
  Receipt Date: 20250317
  Transmission Date: 20250408
  Serious: Yes (Other)
  Sender: PFIZER
  Company Number: PL-009507513-2261273

PATIENT
  Age: 53 Year
  Sex: Female

DRUGS (12)
  1. CARBOPLATIN [Suspect]
     Active Substance: CARBOPLATIN
     Indication: Lung adenocarcinoma stage IV
     Dates: start: 20240808, end: 20240808
  2. CARBOPLATIN [Suspect]
     Active Substance: CARBOPLATIN
     Dosage: 850 MG, EVERY 3 WEEKS
     Dates: start: 20240830, end: 20240830
  3. PEMBROLIZUMAB [Suspect]
     Active Substance: PEMBROLIZUMAB
     Indication: Lung adenocarcinoma stage IV
     Dosage: 200 MG, EVERY 3 WEEKS
     Route: 042
     Dates: start: 20240808, end: 20240808
  4. PEMBROLIZUMAB [Suspect]
     Active Substance: PEMBROLIZUMAB
     Route: 042
     Dates: start: 20240830, end: 20240830
  5. PEMETREXED [Suspect]
     Active Substance: PEMETREXED
     Indication: Lung adenocarcinoma stage IV
     Dosage: 500 MG/M2, EVERY 3 WEEKS
     Dates: start: 20240808, end: 20240808
  6. PEMETREXED [Suspect]
     Active Substance: PEMETREXED
     Dosage: 900 MG, EVERY 3 WEEKS
     Dates: start: 20240830, end: 20240830
  7. PEGFILGRASTIM [Suspect]
     Active Substance: PEGFILGRASTIM
     Indication: Prophylaxis
     Dosage: ON DAY 2 OF THE CHEMO CYCLE ONLY FOR CYCLES USING CARBOPLATIN
     Route: 058
     Dates: start: 20240809, end: 20240809
  8. ENOXAPARIN [Concomitant]
     Active Substance: ENOXAPARIN
     Indication: Fibrin D dimer increased
     Dates: start: 20240808
  9. AMLODIPINE BESYLATE\PERINDOPRIL ARGININE [Concomitant]
     Active Substance: AMLODIPINE BESYLATE\PERINDOPRIL ARGININE
     Dosage: STRENGTH: 7+5 (UNITS NOT PROVIDED), IN THE MORNING
  10. INDAPRES [Concomitant]
  11. FOLIC ACID [Concomitant]
     Active Substance: FOLIC ACID
  12. DEXAMETHASONE [Concomitant]
     Active Substance: DEXAMETHASONE
     Route: 048

REACTIONS (5)
  - Hyperthyroidism [Unknown]
  - Lid lag [Unknown]
  - Bone pain [Recovered/Resolved]
  - Arthralgia [Recovered/Resolved]
  - Inappropriate schedule of product administration [Unknown]

NARRATIVE: CASE EVENT DATE: 20240801
